FAERS Safety Report 8843319 (Version 1)
Quarter: 2012Q4

REPORT INFORMATION
  Report Type: 
  Country: DK (occurrence: HR)
  Receive Date: 20121016
  Receipt Date: 20121016
  Transmission Date: 20130627
  Serious: Yes (Other)
  Sender: FDA-Public Use
  Company Number: HR-FRI-1000039429

PATIENT
  Sex: Male
  Weight: 80 kg

DRUGS (12)
  1. ESCITALOPRAM [Suspect]
     Dosage: 5 mg
     Route: 048
     Dates: start: 201010, end: 20120307
  2. AGGRENOX [Suspect]
     Indication: CEREBROVASCULAR ACCIDENT
     Dosage: 50 mg
     Route: 048
     Dates: start: 20101015
  3. NORPREXANIL [Suspect]
     Indication: HYPERTENSION
     Dosage: 5/5 mg
     Route: 048
     Dates: start: 20120307
  4. TEOTARD [Suspect]
     Indication: CHRONIC OBSTRUCTIVE PULMONARY DISEASE
     Dosage: 200 mg
     Route: 048
     Dates: start: 201010
  5. TRITACE [Suspect]
     Indication: HYPERTENSION
     Dosage: 2.5 mg
     Route: 048
     Dates: start: 201010, end: 201105
  6. CONTROLOC [Suspect]
     Indication: PRODUCT USED FOR UNKNOWN INDICATION
     Dosage: 20 mg
     Route: 048
     Dates: start: 201010, end: 201106
  7. CRESTOR [Suspect]
     Indication: PRODUCT USED FOR UNKNOWN INDICATION
     Dosage: 20 mg
     Route: 048
     Dates: start: 201010, end: 201106
  8. KAL B-COMPLEX [Suspect]
     Indication: PRODUCT USED FOR UNKNOWN INDICATION
     Dosage: 100 mg
     Route: 048
     Dates: start: 201012
  9. TWINLAB OMEGA-3 FISH OIL [Concomitant]
     Indication: PRODUCT USED FOR UNKNOWN INDICATION
     Route: 048
     Dates: start: 201012
  10. LAMISIL [Concomitant]
     Route: 061
     Dates: start: 201010, end: 201105
  11. SOLGAR MAGNEZIJ [Concomitant]
     Dosage: 300 mg
     Route: 048
  12. RIZOLIP [Concomitant]
     Route: 048
     Dates: start: 201109, end: 201205

REACTIONS (15)
  - None [Recovered/Resolved]
  - Nail discolouration [Recovered/Resolved]
  - Myalgia [Unknown]
  - Muscle spasms [Unknown]
  - Muscle atrophy [Unknown]
  - Walking disability [Unknown]
  - Flatulence [Unknown]
  - Diarrhoea [Unknown]
  - Constipation [Unknown]
  - Blood cholesterol increased [Unknown]
  - Haematocrit decreased [Unknown]
  - Haemoglobin decreased [Unknown]
  - Nitrite urine [Unknown]
  - Red blood cell count decreased [Unknown]
  - Blood uric acid increased [Recovered/Resolved]
